FAERS Safety Report 9210219 (Version 1)
Quarter: 2013Q2

REPORT INFORMATION
  Report Type: Report from Study
  Country: DE (occurrence: DE)
  Receive Date: 20130404
  Receipt Date: 20130404
  Transmission Date: 20140414
  Serious: Yes (Death, Hospitalization, Other)
  Sender: FDA-Public Use
  Company Number: DE-ROCHE-1206911

PATIENT
  Sex: 0

DRUGS (13)
  1. MYCOPHENOLATE MOFETIL [Suspect]
     Indication: IMMUNOSUPPRESSION
     Dosage: 0-6 MONTH: 2.5-4.0 MICRO GM/ML
     Route: 065
  2. MYCOPHENOLATE MOFETIL [Suspect]
     Dosage: 7TH MONTH TO TENTH YEAR: 1.5-2.5 MICROGRAM/ML
     Route: 065
  3. TACROLIMUS [Suspect]
     Indication: IMMUNOSUPPRESSION
     Dosage: FOR FIRST 0-6 MONTHS: 13-15 MG/ML
     Route: 042
  4. TACROLIMUS [Suspect]
     Dosage: FOR 7-12 MONTHS: 10-12 MG/ML
     Route: 048
  5. TACROLIMUS [Suspect]
     Dosage: SECOND YEAR: 8-10 MG/ML
     Route: 048
  6. TACROLIMUS [Suspect]
     Dosage: THIRD TO FOURTH YEAR: 6-8 MG/ML
     Route: 048
  7. TACROLIMUS [Suspect]
     Dosage: FIFTH TO TENTH YEAR; 4-7 MG/ML
     Route: 048
  8. CICLOSPORIN [Suspect]
     Indication: IMMUNOSUPPRESSION
     Dosage: 0-6 MONTH: 200-300 MG/ML
     Route: 042
  9. CICLOSPORIN [Suspect]
     Dosage: 7-24 MONTH: 150-200 MG/ML
     Route: 048
  10. CICLOSPORIN [Suspect]
     Dosage: 3-10 YEAR: 100-150 MG/ML
     Route: 048
  11. METHYLPREDNISOLONE [Suspect]
     Indication: IMMUNOSUPPRESSION
     Route: 040
  12. METHYLPREDNISOLONE [Suspect]
     Dosage: 125 MG X 3 WITHIN THE INITAL 24 HOURS
     Route: 042
  13. SIMVASTATIN [Concomitant]
     Dosage: 5 MG/DAY-20 MG/DAY
     Route: 065

REACTIONS (6)
  - Aspergillus infection [Fatal]
  - Sepsis [Fatal]
  - Neoplasm skin [Unknown]
  - Lymphoma [Unknown]
  - Neoplasm [Unknown]
  - Cytomegalovirus infection [Unknown]
